FAERS Safety Report 9246929 (Version 3)
Quarter: 2013Q2

REPORT INFORMATION
  Report Type: Report from Study
  Country: US (occurrence: US)
  Receive Date: 20130422
  Receipt Date: 20130617
  Transmission Date: 20140414
  Serious: Yes (Other)
  Sender: FDA-Public Use
  Company Number: US-ABBOTT-13P-163-1077433-00

PATIENT
  Sex: Female
  Weight: 118.04 kg

DRUGS (43)
  1. HUMIRA [Suspect]
     Indication: CROHN^S DISEASE
     Dates: start: 20130315, end: 20130315
  2. HUMIRA [Suspect]
     Dates: start: 20130329, end: 20130329
  3. HUMIRA [Suspect]
     Route: 058
  4. ADVAIR [Suspect]
     Indication: PRODUCT USED FOR UNKNOWN INDICATION
     Dosage: INHALER
     Route: 055
  5. AZATHIOPRINE [Concomitant]
     Indication: CROHN^S DISEASE
     Dates: start: 1997
  6. ADDERALL [Concomitant]
     Indication: FIBROMYALGIA
  7. ZOLPIDEM [Concomitant]
     Indication: INSOMNIA
  8. LEVOTHYROXINE [Concomitant]
     Indication: HYPOTHYROIDISM
  9. MUPIROCIN [Concomitant]
     Indication: NASAL ULCER
  10. RESTASIS [Concomitant]
     Indication: DRY EYE
  11. BETAMETHASONE [Concomitant]
     Indication: PSORIASIS
  12. BIOTINE [Concomitant]
     Indication: ENZYME ABNORMALITY
  13. VITAMIN B12 [Concomitant]
     Indication: VITAMIN B COMPLEX DEFICIENCY
     Route: 060
  14. COD LIVER OIL [Concomitant]
     Indication: PRODUCT USED FOR UNKNOWN INDICATION
  15. VITAMIN B 12 [Concomitant]
     Indication: VITAMIN B12 DEFICIENCY
     Route: 050
  16. LIDOCAINE W/PRILOCAINE [Concomitant]
     Indication: PAIN
     Route: 061
  17. ALPRAZOLAM [Concomitant]
     Indication: ANXIETY DISORDER
  18. PAROXETINE [Concomitant]
     Indication: ANXIETY
  19. ATENOLOL [Concomitant]
     Indication: ATRIAL FIBRILLATION
  20. PERCOCET [Concomitant]
     Indication: PAIN
  21. CARAFATE [Concomitant]
     Indication: CROHN^S DISEASE
  22. ALBUTEROL [Concomitant]
     Indication: ASTHMA
     Route: 055
  23. CLONIDINE [Concomitant]
     Indication: HYPERHIDROSIS
     Route: 062
  24. FUROSEMIDE [Concomitant]
     Indication: FLUID IMBALANCE
  25. KETOCONAZOLE [Concomitant]
     Indication: FUNGAL SKIN INFECTION
  26. LIDODERM [Concomitant]
     Indication: PAIN
     Dosage: PATCHES
  27. POTASSIUM 99 [Concomitant]
     Indication: HYPOKALAEMIA
  28. DEXILANT [Concomitant]
     Indication: GASTROOESOPHAGEAL REFLUX DISEASE
  29. BORAGE [Concomitant]
     Indication: METABOLIC DISORDER
  30. CALCIUM + D3 [Concomitant]
     Indication: HYPOVITAMINOSIS
  31. NYSTAT [Concomitant]
     Indication: SKIN ULCER
     Dosage: POWDER
  32. FLUOCINOLONE ACETONIDE [Concomitant]
     Indication: FURUNCLE
     Route: 061
  33. OMEGA 3 6 9 [Concomitant]
     Indication: MALNUTRITION
  34. EVENING PRIMROSE [Concomitant]
     Indication: HORMONE REPLACEMENT THERAPY
  35. ASPIRIN [Concomitant]
     Indication: COAGULOPATHY
  36. CORTISONE ACETATE [Concomitant]
     Indication: PRODUCT USED FOR UNKNOWN INDICATION
  37. GARLIC [Concomitant]
     Indication: CARDIOVASCULAR DISORDER
  38. NYSTATIN [Concomitant]
     Indication: CANDIDA INFECTION
     Route: 048
  39. BIOFREEZE [Concomitant]
     Indication: ARTHROPATHY
  40. DEVROM [Concomitant]
     Indication: ILEOSTOMY
     Route: 060
  41. PROVENTIL [Concomitant]
     Indication: PRODUCT USED FOR UNKNOWN INDICATION
     Dosage: EVERY 4 HRS PRN, ONCE OR TWICE A YEAR
  42. PROVENTIL [Concomitant]
  43. VENTOLIN HFA [Concomitant]
     Indication: PRODUCT USED FOR UNKNOWN INDICATION
     Dates: start: 20130523

REACTIONS (24)
  - Visual impairment [Not Recovered/Not Resolved]
  - Plicated tongue [Unknown]
  - Tongue haemorrhage [Unknown]
  - Swollen tongue [Unknown]
  - Glossodynia [Unknown]
  - Transient ischaemic attack [Unknown]
  - Terminal state [Unknown]
  - Night sweats [Unknown]
  - Dyspnoea [Unknown]
  - Weight increased [Unknown]
  - Fatigue [Unknown]
  - Asthma [Not Recovered/Not Resolved]
  - Hepatic enzyme abnormal [Unknown]
  - Blood thyroid stimulating hormone abnormal [Unknown]
  - Hypoaesthesia [Unknown]
  - Hypoaesthesia oral [Unknown]
  - Gait disturbance [Unknown]
  - Palpitations [Unknown]
  - Insomnia [Unknown]
  - Headache [Unknown]
  - Incontinence [Unknown]
  - Fatigue [Unknown]
  - Enzyme abnormality [Unknown]
  - Dry mouth [Unknown]
